FAERS Safety Report 9856914 (Version 1)
Quarter: 2014Q1

REPORT INFORMATION
  Report Type: Spontaneous
  Country: US (occurrence: US)
  Receive Date: 20140130
  Receipt Date: 20140130
  Transmission Date: 20141002
  Serious: No
  Sender: FDA-Public Use
  Company Number: US-PFIZER INC-2014027451

PATIENT
  Sex: Female

DRUGS (1)
  1. CELEBREX [Suspect]
     Dosage: UNK
     Dates: start: 2013

REACTIONS (4)
  - Erythema [Unknown]
  - Dry skin [Unknown]
  - Sensory disturbance [Unknown]
  - Skin reaction [Unknown]
